FAERS Safety Report 4975922-3 (Version None)
Quarter: 2006Q2

REPORT INFORMATION
  Report Type: 
  Country: None (occurrence: None)
  Receive Date: 20060418
  Receipt Date: 20060106
  Transmission Date: 20061013
  Serious: Yes (Other)
  Sender: FDA-Public Use
  Company Number: US-MERCK-0601USA00999

PATIENT
  Age: 52 Year
  Sex: Female
  Weight: 77 kg

DRUGS (11)
  1. VIOXX [Suspect]
     Indication: ARTHRITIS
     Route: 048
     Dates: start: 20000601, end: 20030101
  2. VIOXX [Suspect]
     Route: 048
     Dates: start: 20000601, end: 20030101
  3. VIOXX [Suspect]
     Route: 048
     Dates: start: 20000601, end: 20030101
  4. VIOXX [Suspect]
     Route: 048
     Dates: start: 20000601, end: 20030101
  5. KLONOPIN [Concomitant]
     Route: 065
     Dates: start: 20010101
  6. SERZONE [Concomitant]
     Route: 065
     Dates: start: 20010101, end: 20040701
  7. ULTRAM [Concomitant]
     Route: 065
  8. [THERAPY UNSPECIFIED] [Concomitant]
     Route: 065
  9. OXYCONTIN [Concomitant]
     Route: 065
  10. [THERAPY UNSPECIFIED] [Concomitant]
     Route: 065
  11. SALAGEN [Concomitant]
     Route: 065

REACTIONS (4)
  - BLOOD CHOLESTEROL INCREASED [None]
  - FIBROMYALGIA [None]
  - MYOCARDIAL INFARCTION [None]
  - SLEEP APNOEA SYNDROME [None]
